FAERS Safety Report 5809849-1 (Version None)
Quarter: 2008Q3

REPORT INFORMATION
  Report Type: 
  Country: None (occurrence: None)
  Receive Date: 20080715
  Receipt Date: 20080711
  Transmission Date: 20090109
  Serious: Yes (Hospitalization)
  Sender: FDA-Public Use
  Company Number: DE-ASTRAZENECA-2008PK01539

PATIENT
  Age: 45 Year
  Sex: Female

DRUGS (2)
  1. SEROQUEL PROLONG [Suspect]
     Route: 048
  2. CIPRALEX [Suspect]

REACTIONS (1)
  - RASH GENERALISED [None]
